FAERS Safety Report 8713199 (Version 2)
Quarter: 2012Q4

REPORT INFORMATION
  Report Type: 
  Country: US (occurrence: US)
  Receive Date: 20120808
  Receipt Date: 20120831
  Transmission Date: 20130627
  Serious: No
  Sender: FDA-Public Use
  Company Number: US-PFIZER INC-2012191132

PATIENT
  Age: 60 Year
  Sex: Female
  Weight: 45.35 kg

DRUGS (3)
  1. PREMARIN VAGINAL CREAM [Suspect]
     Indication: HORMONE REPLACEMENT THERAPY
     Dosage: 0.625 mg, 1x/day
     Route: 067
     Dates: start: 2009, end: 201207
  2. PREMARIN VAGINAL CREAM [Suspect]
     Indication: VULVOVAGINAL DRYNESS
  3. PREMARIN VAGINAL CREAM [Suspect]
     Indication: MENOPAUSAL DISORDER

REACTIONS (6)
  - Application site hypersensitivity [Recovered/Resolved]
  - Drug hypersensitivity [Recovered/Resolved]
  - Fungal infection [Recovered/Resolved]
  - Erythema [Recovered/Resolved]
  - Burning sensation [Recovered/Resolved]
  - Pruritus [Recovered/Resolved]
